FAERS Safety Report 15519943 (Version 1)
Quarter: 2018Q4

REPORT INFORMATION
  Report Type: Report from Study
  Country: US (occurrence: US)
  Receive Date: 20181017
  Receipt Date: 20181017
  Transmission Date: 20190205
  Serious: No
  Sender: FDA-Public Use
  Company Number: US-AMGEN-USASL2018102756

PATIENT
  Age: 78 Year
  Sex: Female

DRUGS (2)
  1. REPATHA [Suspect]
     Active Substance: EVOLOCUMAB
     Indication: BLOOD CHOLESTEROL ABNORMAL
     Dosage: 140 MG, Q2WK
     Route: 065
  2. REPATHA [Suspect]
     Active Substance: EVOLOCUMAB
     Indication: HYPERCHOLESTEROLAEMIA
     Dosage: 140 MG, Q2WK
     Route: 065
     Dates: start: 20180712

REACTIONS (7)
  - Peripheral swelling [Unknown]
  - Swelling face [Unknown]
  - Arthralgia [Unknown]
  - Pruritus generalised [Unknown]
  - Periorbital swelling [Unknown]
  - Rash pruritic [Unknown]
  - Pain in extremity [Unknown]

NARRATIVE: CASE EVENT DATE: 201807
